FAERS Safety Report 17451943 (Version 1)
Quarter: 2020Q1

REPORT INFORMATION
  Report Type: Report from Study
  Country: IE (occurrence: IE)
  Receive Date: 20200224
  Receipt Date: 20200224
  Transmission Date: 20200409
  Serious: Yes (Other)
  Sender: FDA-Public Use
  Company Number: IE-JNJFOC-20200220118

PATIENT
  Sex: Male

DRUGS (6)
  1. STELARA [Suspect]
     Active Substance: USTEKINUMAB
     Indication: COLITIS ULCERATIVE
     Route: 058
     Dates: start: 20191217
  2. PREDNISOLONE. [Concomitant]
     Active Substance: PREDNISOLONE
     Route: 050
  3. CALCICHEW [Concomitant]
     Active Substance: CALCIUM CARBONATE
     Route: 050
  4. PENTASA [Concomitant]
     Active Substance: MESALAMINE
     Route: 050
  5. ESCITALOPRAM [Concomitant]
     Active Substance: ESCITALOPRAM OXALATE
     Route: 050
  6. STELARA [Suspect]
     Active Substance: USTEKINUMAB
     Route: 042

REACTIONS (1)
  - Rectal haemorrhage [Not Recovered/Not Resolved]
